FAERS Safety Report 19940974 (Version 3)
Quarter: 2022Q1

REPORT INFORMATION
  Report Type: Spontaneous
  Country: US (occurrence: US)
  Receive Date: 20211012
  Receipt Date: 20220329
  Transmission Date: 20220423
  Serious: No
  Sender: FDA-Public Use
  Company Number: US-AVEO ONCOLOGY-2021-AVEO-US003516

PATIENT

DRUGS (27)
  1. FOTIVDA [Suspect]
     Active Substance: TIVOZANIB HYDROCHLORIDE
     Indication: Renal cell carcinoma
     Dosage: 0.89 MG, DAILY FOR 21 DAYS FOLLOWING 7 DAY BREAK
     Route: 048
     Dates: start: 20210808, end: 20220211
  2. VITAMINS [Concomitant]
     Active Substance: VITAMINS
  3. COENZYME Q10 [Concomitant]
     Active Substance: DIETARY SUPPLEMENT\UBIDECARENONE
  4. LAMOTRIGINE [Concomitant]
     Active Substance: LAMOTRIGINE
  5. VALACYCLOVIR [Concomitant]
     Active Substance: VALACYCLOVIR HYDROCHLORIDE
  6. VITAMIN B [Concomitant]
     Active Substance: VITAMIN B
  7. VITAMIN C [Concomitant]
     Active Substance: ASCORBIC ACID
  8. VITAMIN E [Concomitant]
     Active Substance: .ALPHA.-TOCOPHEROL
  9. VITAMINS [Concomitant]
     Active Substance: VITAMINS
  10. DAIRY RELIEF [Concomitant]
  11. KEYTRUDA [Concomitant]
     Active Substance: PEMBROLIZUMAB
  12. LIDOCAINE\PRILOCAINE [Concomitant]
     Active Substance: LIDOCAINE\PRILOCAINE
  13. NICOTINE [Concomitant]
     Active Substance: NICOTINE
  14. OMEGA 3 [Concomitant]
     Active Substance: CAPSAICIN
  15. SF 5000 PLUS [Concomitant]
     Active Substance: SODIUM FLUORIDE
  16. VALTREX [Concomitant]
     Active Substance: VALACYCLOVIR HYDROCHLORIDE
  17. MINERALS\VITAMINS [Concomitant]
     Active Substance: MINERALS\VITAMINS
  18. ZOFRAN [Concomitant]
     Active Substance: ONDANSETRON HYDROCHLORIDE
     Dosage: 4 MG, TAKE 2 TABLETS EVERY 8 HOURS BY ORAL ROUTE AS NEEDED
     Route: 048
  19. CABOMETYX [Concomitant]
     Active Substance: CABOZANTINIB S-MALATE
     Dosage: 60 MG DAILY TAKE 1 TABLET EVERY DAY BY ORAL ROUTE
     Route: 048
  20. LACTASE [Concomitant]
     Active Substance: LACTASE
     Dosage: 3000 UNK PRN ABOUT Q 1-2 DAYS
     Route: 048
  21. VITAMINS [Concomitant]
     Active Substance: VITAMINS
     Dosage: UNK, DAILY, TAKE 1 TABLET BY MOUTH DAILY
     Route: 048
  22. PEMBROLIZUMAB [Concomitant]
     Active Substance: PEMBROLIZUMAB
     Dosage: Q3 WEEKS
  23. ACETAMINOPHEN [Concomitant]
     Active Substance: ACETAMINOPHEN
     Dosage: 500 MG
  24. LAMICTAL [Concomitant]
     Active Substance: LAMOTRIGINE
     Dosage: 100 MG, DAILY, PO EVERY MORNING AND 150 MG EVERY EVENING
  25. CLARITIN [Concomitant]
     Active Substance: LORATADINE
  26. INLYTA [Concomitant]
     Active Substance: AXITINIB
     Dosage: 5 MG, DAILY TAKE 5MG BY MOUTH 2 TIMES DAILY FOR CANCER
     Route: 048
  27. GABAPENTIN [Concomitant]
     Active Substance: GABAPENTIN
     Dosage: 300 MG DAILY, TAKE ONE CAPSULE BY MOUTH NIGHTLY AT BEDTIME FOR NEUROPHATIC PAIN

REACTIONS (8)
  - Fatigue [Unknown]
  - Constipation [Unknown]
  - Disease progression [Unknown]
  - Drug ineffective [Unknown]
  - Abdominal discomfort [Unknown]
  - Asthenia [Unknown]
  - Metastases to liver [Unknown]
  - Renal cancer recurrent [Unknown]
